FAERS Safety Report 21401671 (Version 3)
Quarter: 2023Q1

REPORT INFORMATION
  Report Type: Report from Study
  Country: US (occurrence: US)
  Receive Date: 20221003
  Receipt Date: 20230131
  Transmission Date: 20230418
  Serious: Yes (Other)
  Sender: FDA-Public Use
  Company Number: US-TAKEDA-2022TUS067948

PATIENT
  Sex: Female
  Weight: 77 kg

DRUGS (2)
  1. PONATINIB [Suspect]
     Active Substance: PONATINIB
     Indication: Leukaemia
     Dosage: 45 MILLIGRAM, QD
     Route: 065
     Dates: start: 20220908
  2. PONATINIB [Suspect]
     Active Substance: PONATINIB
     Indication: Chronic myeloid leukaemia

REACTIONS (4)
  - Pancreatic carcinoma [Unknown]
  - Rash pruritic [Unknown]
  - Weight decreased [Unknown]
  - Rash [Unknown]
